FAERS Safety Report 4542009-3 (Version None)
Quarter: 2004Q4

REPORT INFORMATION
  Report Type: 
  Country: None (occurrence: None)
  Receive Date: 20041230
  Receipt Date: 20041207
  Transmission Date: 20050328
  Serious: Yes (Other)
  Sender: FDA-Public Use
  Company Number: JP-MERCK-0412USA01118

PATIENT
  Age: 75 Year
  Sex: Female

DRUGS (11)
  1. PEPCID RPD [Suspect]
     Indication: GASTRITIS
     Route: 048
     Dates: start: 20030220, end: 20041019
  2. RILMAZAFONE HYDROCHLORIDE [Concomitant]
     Route: 048
     Dates: start: 20040301, end: 20041017
  3. ASPIRIN [Concomitant]
     Route: 048
     Dates: start: 20040908, end: 20041203
  4. SELBEX [Concomitant]
     Route: 048
     Dates: start: 20040908
  5. PRORENAL [Concomitant]
     Route: 065
     Dates: start: 20040908, end: 20041126
  6. BIOFERMIN [Concomitant]
     Route: 048
     Dates: start: 20040716
  7. NITRODERM [Concomitant]
     Route: 065
     Dates: start: 20040227, end: 20041006
  8. WARFARIN [Concomitant]
     Route: 048
     Dates: start: 20040908, end: 20041006
  9. LIPLE [Concomitant]
     Route: 065
     Dates: start: 20041004
  10. PROTAPHANE INNOLET [Concomitant]
     Route: 058
     Dates: start: 20010416
  11. PROTAPHANE INNOLET [Concomitant]
     Route: 058
     Dates: start: 20010416

REACTIONS (2)
  - DEPRESSED LEVEL OF CONSCIOUSNESS [None]
  - HAEMODIALYSIS [None]
